FAERS Safety Report 18888979 (Version 1)
Quarter: 2021Q1

REPORT INFORMATION
  Report Type: Spontaneous
  Country: US (occurrence: US)
  Receive Date: 20210213
  Receipt Date: 20210213
  Transmission Date: 20210420
  Serious: No
  Sender: FDA-Public Use
  Company Number: US-TEVA-2021-US-1876744

PATIENT
  Age: 16 Year
  Sex: Male

DRUGS (1)
  1. GUANFACINE HYDROCHLORIDE. [Suspect]
     Active Substance: GUANFACINE HYDROCHLORIDE
     Route: 065

REACTIONS (2)
  - Tic [Not Recovered/Not Resolved]
  - Drug ineffective [Not Recovered/Not Resolved]
